FAERS Safety Report 24297132 (Version 1)
Quarter: 2024Q3

REPORT INFORMATION
  Report Type: Spontaneous
  Country: GB (occurrence: GB)
  Receive Date: 20240909
  Receipt Date: 20240909
  Transmission Date: 20241017
  Serious: Yes (Hospitalization, Other)
  Sender: AUROBINDO
  Company Number: GB-MHRA-TPP639199C7853789YC1724164492913

PATIENT
  Age: 73 Year
  Sex: Male
  Weight: 84 kg

DRUGS (12)
  1. CITALOPRAM HYDROBROMIDE [Suspect]
     Active Substance: CITALOPRAM HYDROBROMIDE
     Indication: Ill-defined disorder
     Dosage: 20 MILLIGRAM
     Route: 048
     Dates: start: 20240816
  2. ASPIRIN [Concomitant]
     Active Substance: ASPIRIN
     Indication: Ill-defined disorder
     Dosage: 1 DOSAGE FORM,1 TABLET
     Route: 048
     Dates: start: 20230816
  3. ATORVASTATIN [Concomitant]
     Active Substance: ATORVASTATIN
     Indication: Ill-defined disorder
     Dosage: 1 DOSAGE FORM, ONCE A DA, AT NIGHT
     Route: 048
     Dates: start: 20230816
  4. BISOPROLOL [Concomitant]
     Active Substance: BISOPROLOL\BISOPROLOL FUMARATE
     Indication: Ill-defined disorder
     Dosage: 1 DOSAGE FORM
     Route: 048
     Dates: start: 20230904
  5. CO DYDRAMOL ALMUS [Concomitant]
     Indication: Pain
     Dosage: 1-2, UP TO FOUR TIMES/DAY, WHEN REQUIRED
     Route: 048
     Dates: start: 20230816
  6. CARBAMAZEPINE [Concomitant]
     Active Substance: CARBAMAZEPINE
     Indication: Ill-defined disorder
     Dosage: 1 DOSAGE FORM
     Route: 048
     Dates: start: 20240820
  7. LANSOPRAZOLE [Concomitant]
     Active Substance: LANSOPRAZOLE
     Indication: Ill-defined disorder
     Dosage: 1 DOSAGE FORM
     Route: 048
     Dates: start: 20230816
  8. SODIUM CHLORIDE [Concomitant]
     Active Substance: SODIUM CHLORIDE
     Indication: Ill-defined disorder
     Dosage: 5 MILLILITER
     Route: 048
     Dates: start: 20240816, end: 20240818
  9. SERTRALINE [Concomitant]
     Active Substance: SERTRALINE HYDROCHLORIDE
     Indication: Ill-defined disorder
     Dosage: 1DOSAGE FORM, ONCE A DAY, IN THE MORNING
     Route: 048
     Dates: start: 20240818
  10. TEGRETOL [Concomitant]
     Active Substance: CARBAMAZEPINE
     Indication: Ill-defined disorder
     Dosage: 1 DOSAGE FORM, TWO TIMES A DAY
     Route: 048
     Dates: start: 20230816
  11. TINZAPARIN [Concomitant]
     Active Substance: TINZAPARIN
     Indication: Ill-defined disorder
     Dosage: 4500 INTERNATIONAL UNIT
     Route: 065
     Dates: start: 20240817
  12. GOSERELIN [Concomitant]
     Active Substance: GOSERELIN
     Indication: Ill-defined disorder
     Dosage: UNK
     Route: 065
     Dates: start: 20230223

REACTIONS (1)
  - Atrial conduction time prolongation [Recovered/Resolved]

NARRATIVE: CASE EVENT DATE: 20240820
